FAERS Safety Report 11220221 (Version 1)
Quarter: 2015Q2

REPORT INFORMATION
  Report Type: Report from Study
  Country: US (occurrence: US)
  Receive Date: 20150625
  Receipt Date: 20150625
  Transmission Date: 20150821
  Serious: No
  Sender: FDA-Public Use
  Company Number: US-EXELIXIS-CABO-15005377

PATIENT
  Sex: Female
  Weight: 104.4 kg

DRUGS (7)
  1. ALLOPURINOL. [Concomitant]
     Active Substance: ALLOPURINOL
  2. HYDRODIURIL [Concomitant]
     Active Substance: HYDROCHLOROTHIAZIDE
  3. ATIVAN [Concomitant]
     Active Substance: LORAZEPAM
  4. COLCRYS [Concomitant]
     Active Substance: COLCHICINE
  5. CABOZANTINIB [Suspect]
     Active Substance: CABOZANTINIB
     Indication: RENAL CANCER
     Dosage: 60 MG, QD
     Route: 048
     Dates: start: 20150416
  6. ALBUTEROL. [Concomitant]
     Active Substance: ALBUTEROL
  7. AMLODIPINE [Concomitant]
     Active Substance: AMLODIPINE BESYLATE

REACTIONS (5)
  - Pain in extremity [Unknown]
  - Oral pain [Unknown]
  - Glossitis [Unknown]
  - Off label use [Unknown]
  - Nausea [Unknown]
